FAERS Safety Report 25240531 (Version 1)
Quarter: 2025Q2

REPORT INFORMATION
  Report Type: Spontaneous
  Country: FR (occurrence: FR)
  Receive Date: 20250425
  Receipt Date: 20250425
  Transmission Date: 20250716
  Serious: Yes (Other)
  Sender: HIKMA
  Company Number: None

PATIENT
  Age: 67 Year
  Sex: Male
  Weight: 68.7 kg

DRUGS (8)
  1. LEUCOVORIN CALCIUM [Suspect]
     Active Substance: LEUCOVORIN CALCIUM
     Indication: Oesophageal squamous cell carcinoma metastatic
     Dosage: 724 MILLIGRAM, QOW
     Route: 042
     Dates: start: 20241106, end: 20250225
  2. LEUCOVORIN CALCIUM [Suspect]
     Active Substance: LEUCOVORIN CALCIUM
     Route: 042
     Dates: start: 20250325, end: 20250325
  3. FLUOROURACIL [Suspect]
     Active Substance: FLUOROURACIL
     Dosage: 4350 MILLIGRAM, QOW
     Route: 042
     Dates: start: 20241106, end: 20250225
  4. FLUOROURACIL [Suspect]
     Active Substance: FLUOROURACIL
     Route: 042
     Dates: start: 20250325, end: 20250325
  5. FLUOROURACIL [Suspect]
     Active Substance: FLUOROURACIL
     Indication: Oesophageal squamous cell carcinoma metastatic
     Dosage: 725 MILLIGRAM, QOW
     Route: 042
     Dates: start: 20241106, end: 20250225
  6. FLUOROURACIL [Suspect]
     Active Substance: FLUOROURACIL
     Route: 042
     Dates: start: 20250325, end: 20250325
  7. OXALIPLATIN [Suspect]
     Active Substance: OXALIPLATIN
     Indication: Oesophageal squamous cell carcinoma metastatic
     Dosage: 155 MILLIGRAM, QOW
     Route: 042
     Dates: start: 20241106, end: 20250225
  8. OXALIPLATIN [Suspect]
     Active Substance: OXALIPLATIN
     Route: 042
     Dates: start: 20250325, end: 20250325

REACTIONS (1)
  - Dyspnoea [Not Recovered/Not Resolved]

NARRATIVE: CASE EVENT DATE: 20241201
